FAERS Safety Report 8801158 (Version 1)
Quarter: 2012Q4

REPORT INFORMATION
  Report Type: 
  Country: DE (occurrence: DE)
  Receive Date: 20120921
  Receipt Date: 20120921
  Transmission Date: 20130627
  Serious: Yes (Hospitalization)
  Sender: FDA-Public Use
  Company Number: DE-EISAI INC-E7389-02918-SPO-DE

PATIENT
  Age: 47 Year
  Sex: Female
  Weight: 47 kg

DRUGS (6)
  1. HALAVEN [Suspect]
     Indication: METASTATIC BREAST CANCER
     Dosage: 1.23mg - 1.52mg - 1.85mg - 0.97mg
     Route: 041
     Dates: start: 201205, end: 20120719
  2. FENTANYL [Concomitant]
     Indication: METASTATIC BREAST CANCER
     Route: 003
     Dates: end: 20120808
  3. PARACETAMOL [Concomitant]
     Indication: METASTATIC BREAST CANCER
     Route: 048
  4. CODEIN [Concomitant]
     Indication: METASTATIC BREAST CANCER
     Route: 048
  5. OXAZEPAM [Concomitant]
     Indication: METASTATIC BREAST CANCER
     Route: 048
  6. XGEVA [Concomitant]
     Indication: METASTATIC BREAST CANCER
     Route: 058
     Dates: end: 20120722

REACTIONS (4)
  - Febrile infection [Recovered/Resolved]
  - Pleural effusion [Unknown]
  - Leukopenia [Recovered/Resolved]
  - Dyspnoea [Unknown]
